FAERS Safety Report 4819658-8 (Version None)
Quarter: 2005Q4

REPORT INFORMATION
  Report Type: 
  Country: None (occurrence: None)
  Receive Date: 20051002
  Receipt Date: 20051002
  Transmission Date: 20060501
  Serious: Yes (Life-Threatening, Hospitalization)
  Sender: FDA-Public Use
  Company Number: None

PATIENT
  Age: 70 Year
  Sex: Male
  Weight: 104.3 kg

DRUGS (1)
  1. LOSARTAN [Suspect]
     Indication: HYPERTENSION
     Dosage: 100 MG Q DAY
     Dates: start: 20030818, end: 20050819

REACTIONS (6)
  - ANGIONEUROTIC OEDEMA [None]
  - DISORIENTATION [None]
  - HYPERHIDROSIS [None]
  - PNEUMONIA [None]
  - SEPSIS [None]
  - SWOLLEN TONGUE [None]
